FAERS Safety Report 5887053-9 (Version None)
Quarter: 2008Q3

REPORT INFORMATION
  Report Type: 
  Country: None (occurrence: None)
  Receive Date: 20080915
  Receipt Date: 20080902
  Transmission Date: 20090109
  Serious: Yes (Hospitalization)
  Sender: FDA-Public Use
  Company Number: 585093

PATIENT
  Age: 82 Year
  Sex: Female

DRUGS (9)
  1. SORIATANE [Suspect]
     Indication: PUSTULAR PSORIASIS
     Dosage: 25 MG DAILY; ORAL
     Route: 048
     Dates: end: 20051001
  2. AMIODARONE HCL [Suspect]
     Indication: TACHYCARDIA
     Dosage: 200 MG, ORAL
     Route: 048
     Dates: start: 20050901, end: 20051001
  3. FUROSEMIDE [Concomitant]
  4. NITRENDIPINE (NITRENDIPINE) [Concomitant]
  5. LEVOTHYROXINE SODIUM [Concomitant]
  6. CLOPIDOGREL [Concomitant]
  7. TRINITRINE (NITROGLYCERIN) [Concomitant]
  8. POTASSIUM CHLORIDE [Concomitant]
  9. BETAMETHASONE [Concomitant]

REACTIONS (2)
  - BRADYCARDIA [None]
  - PNEUMONITIS [None]
